FAERS Safety Report 6669311-3 (Version None)
Quarter: 2010Q2

REPORT INFORMATION
  Report Type: 
  Country: None (occurrence: None)
  Receive Date: 20100402
  Receipt Date: 20100326
  Transmission Date: 20101027
  Serious: Yes (Hospitalization)
  Sender: FDA-Public Use
  Company Number: 2010SP000816

PATIENT
  Sex: Female

DRUGS (1)
  1. LUNESTA [Suspect]
     Dosage: ORAL
     Route: 048
     Dates: start: 20050101, end: 20050101

REACTIONS (7)
  - ABDOMINAL PAIN [None]
  - COUGH [None]
  - FALL [None]
  - FATIGUE [None]
  - HIP FRACTURE [None]
  - MALAISE [None]
  - PAIN [None]
